FAERS Safety Report 11538699 (Version 1)
Quarter: 2015Q3

REPORT INFORMATION
  Report Type: Spontaneous
  Country: FR (occurrence: FR)
  Receive Date: 20150923
  Receipt Date: 20150923
  Transmission Date: 20151125
  Serious: Yes (Hospitalization)
  Sender: FDA-Public Use
  Company Number: FR-ROCHE-1595719

PATIENT
  Age: 72 Year
  Sex: Female

DRUGS (8)
  1. DERMOVAL (FRANCE) [Concomitant]
     Route: 065
     Dates: start: 20150618
  2. LOPERAMIDE [Concomitant]
     Active Substance: LOPERAMIDE
  3. FLAGYL [Suspect]
     Active Substance: METRONIDAZOLE\METRONIDAZOLE HYDROCHLORIDE
     Indication: DIARRHOEA
     Route: 042
     Dates: start: 20150529, end: 20150608
  4. TIENAM [Suspect]
     Active Substance: CILASTATIN SODIUM\IMIPENEM
     Indication: DIARRHOEA
     Route: 042
     Dates: start: 20150603, end: 20150608
  5. VOGALENE [Concomitant]
     Active Substance: METOPIMAZINE
     Dosage: 1-4 DOSES.
     Route: 065
  6. PARACETAMOL [Concomitant]
     Active Substance: ACETAMINOPHEN
  7. ROCEPHINE [Suspect]
     Active Substance: CEFTRIAXONE SODIUM
     Indication: DIARRHOEA
     Route: 042
     Dates: start: 20150529, end: 20150531
  8. ESOMEPRAZOLE [Suspect]
     Active Substance: ESOMEPRAZOLE
     Indication: PRODUCT USED FOR UNKNOWN INDICATION
     Route: 042
     Dates: start: 20150529, end: 20150608

REACTIONS (5)
  - Eosinophilia [Recovered/Resolved]
  - Urticaria [Recovered/Resolved]
  - Rash morbilliform [Recovered/Resolved]
  - Cholestasis [Recovered/Resolved]
  - Jaundice [Recovered/Resolved]

NARRATIVE: CASE EVENT DATE: 20150531
